FAERS Safety Report 6302561-4 (Version None)
Quarter: 2009Q3

REPORT INFORMATION
  Report Type: 
  Country: None (occurrence: None)
  Receive Date: 20090810
  Receipt Date: 20090709
  Transmission Date: 20100115
  Serious: No
  Sender: FDA-Public Use
  Company Number: US-BAYER-200926265NA

PATIENT
  Age: 39 Year
  Sex: Female

DRUGS (2)
  1. YAZ [Suspect]
     Indication: ACNE
     Route: 048
     Dates: start: 20081201
  2. YAZ [Suspect]
     Route: 048
     Dates: start: 20070501

REACTIONS (3)
  - GASTROENTERITIS VIRAL [None]
  - MENORRHAGIA [None]
  - SMEAR CERVIX ABNORMAL [None]
